FAERS Safety Report 11594052 (Version 1)
Quarter: 2015Q4

REPORT INFORMATION
  Report Type: Spontaneous
  Country: US (occurrence: US)
  Receive Date: 20151005
  Receipt Date: 20151005
  Transmission Date: 20160304
  Serious: No
  Sender: FDA-Public Use
  Company Number: US-APOTEX-2015AP009313

PATIENT

DRUGS (2)
  1. NICOTINE TRANSDERMAL SYSTEM [Suspect]
     Active Substance: NICOTINE
     Indication: NICOTINE DEPENDENCE
     Dosage: 21 MG/DAY
     Route: 062
     Dates: start: 20150211, end: 20150309
  2. NICOTINE TRANSDERMAL SYSTEM [Suspect]
     Active Substance: NICOTINE
     Dosage: 14 MG, SINGLE
     Route: 062
     Dates: start: 20150310, end: 20150310

REACTIONS (2)
  - Application site erythema [Unknown]
  - Urticaria [Unknown]
